FAERS Safety Report 17163062 (Version 1)
Quarter: 2019Q4

REPORT INFORMATION
  Report Type: Spontaneous
  Country: US (occurrence: US)
  Receive Date: 20191216
  Receipt Date: 20191216
  Transmission Date: 20200122
  Serious: Yes (Hospitalization)
  Sender: FDA-Public Use
  Company Number: None

PATIENT
  Age: 77 Year
  Weight: 78.6 kg

DRUGS (8)
  1. APIXABAN [Suspect]
     Active Substance: APIXABAN
     Indication: ISCHAEMIC STROKE
     Route: 048
  2. ASPIRIN. [Suspect]
     Active Substance: ASPIRIN
     Route: 048
  3. INSULIN LISPRO 5UNITS BI [Concomitant]
  4. GLIPIZIDE/METFORMIN 5/500MG 2 TABLETS BID [Concomitant]
  5. INSULIN GLARGINE 20UNITS BID [Concomitant]
  6. LISINOPRIL 10MG DAILY [Concomitant]
  7. GLIPIZIDE 5MG DAILY [Concomitant]
  8. RANITIDINE 75MG BID [Concomitant]

REACTIONS (3)
  - Aphasia [None]
  - Agitation [None]
  - Haemorrhagic stroke [None]

NARRATIVE: CASE EVENT DATE: 20160105
